FAERS Safety Report 5953751-1 (Version None)
Quarter: 2008Q4

REPORT INFORMATION
  Report Type: 
  Country: None (occurrence: None)
  Receive Date: 20081114
  Receipt Date: 20081023
  Transmission Date: 20090506
  Serious: No
  Sender: FDA-Public Use
  Company Number: US-BAYER-200836698NA

PATIENT
  Sex: Male

DRUGS (5)
  1. LEVITRA [Suspect]
     Indication: DRUG USE FOR UNKNOWN INDICATION
     Dosage: UNIT DOSE: 10 MG
  2. LEVITRA [Suspect]
     Dosage: UNIT DOSE: 10 MG
  3. DICLOFENAC SODIUM [Concomitant]
  4. HYDROCHLOROTHIAZIDE [Concomitant]
  5. MIRALAX [Concomitant]

REACTIONS (1)
  - DRUG INEFFECTIVE [None]
